FAERS Safety Report 14933022 (Version 1)
Quarter: 2018Q2

REPORT INFORMATION
  Report Type: Spontaneous
  Country: US (occurrence: US)
  Receive Date: 20180524
  Receipt Date: 20180524
  Transmission Date: 20180711
  Serious: No
  Sender: FDA-Public Use
  Company Number: US-PFIZER INC-2018210888

PATIENT
  Age: 85 Year
  Sex: Female

DRUGS (2)
  1. PHENYTOIN. [Suspect]
     Active Substance: PHENYTOIN
     Dosage: UNK
  2. SULFASALAZINE. [Suspect]
     Active Substance: SULFASALAZINE
     Dosage: UNK

REACTIONS (3)
  - Rash [Unknown]
  - Pruritus [Unknown]
  - Drug hypersensitivity [Unknown]
